FAERS Safety Report 9614526 (Version 1)
Quarter: 2013Q4

REPORT INFORMATION
  Report Type: Spontaneous
  Country: US (occurrence: None)
  Receive Date: 20131009
  Receipt Date: 20131009
  Transmission Date: 20140711
  Serious: Yes (Other)
  Sender: FDA-Public Use
  Company Number: None

PATIENT
  Age: 42 Year
  Sex: Female

DRUGS (5)
  1. TECFIDERA [Suspect]
     Indication: MULTIPLE SCLEROSIS
     Dosage: 120MG  BID FOR 4 WEEKS  PO
     Route: 048
     Dates: start: 20130810, end: 20130908
  2. TECIFIDERA [Suspect]
     Indication: MULTIPLE SCLEROSIS
     Route: 048
     Dates: start: 20130807, end: 20130910
  3. FOLIC ACID [Concomitant]
  4. LAMOTRIGINE [Concomitant]
  5. TEMAZEPAM [Concomitant]

REACTIONS (3)
  - Throat irritation [None]
  - Cough [None]
  - Haemorrhage [None]
